FAERS Safety Report 8246118-7 (Version None)
Quarter: 2012Q1

REPORT INFORMATION
  Report Type: 
  Country: None (occurrence: None)
  Receive Date: 20120330
  Receipt Date: 20120326
  Transmission Date: 20120608
  Serious: Yes (Death)
  Sender: FDA-Public Use
  Company Number: PHEH2012US003364

PATIENT
  Sex: Female

DRUGS (1)
  1. ZOMETA [Suspect]
     Dosage: 4 MG/5ML, QMO
     Dates: end: 20110725

REACTIONS (3)
  - OVARIAN CANCER [None]
  - MULTIPLE MYELOMA [None]
  - NEOPLASM MALIGNANT [None]
